FAERS Safety Report 5463386-5 (Version None)
Quarter: 2007Q3

REPORT INFORMATION
  Report Type: 
  Country: None (occurrence: None)
  Receive Date: 20070920
  Receipt Date: 20070918
  Transmission Date: 20080115
  Serious: Yes (Death)
  Sender: FDA-Public Use
  Company Number: IT-ASTRAZENECA-2007AC01628

PATIENT

DRUGS (2)
  1. LIDOCAINE [Suspect]
  2. BARIUM SULPHATE [Suspect]

REACTIONS (3)
  - DEATH [None]
  - MEDICATION ERROR [None]
  - OVERDOSE [None]
